FAERS Safety Report 24333192 (Version 4)
Quarter: 2025Q2

REPORT INFORMATION
  Report Type: Spontaneous
  Country: IN (occurrence: IN)
  Receive Date: 20240918
  Receipt Date: 20250609
  Transmission Date: 20250717
  Serious: Yes (Other)
  Sender: SANDOZ
  Company Number: IN-SANDOZ-SDZ2024IN080549

PATIENT
  Sex: Female

DRUGS (4)
  1. TACROLIMUS [Suspect]
     Active Substance: TACROLIMUS
     Dosage: 1 MG, BID
     Route: 048
  2. TACROLIMUS [Suspect]
     Active Substance: TACROLIMUS
     Indication: Renal transplant
     Dosage: UNK, BID; 1MG MORNING, 0.5 MG EVENING
     Route: 048
  3. MYFORTIC [Interacting]
     Active Substance: MYCOPHENOLATE SODIUM
     Indication: Product used for unknown indication
     Dosage: 360 MG, BID
     Route: 048
  4. MYFORTIC [Interacting]
     Active Substance: MYCOPHENOLATE SODIUM
     Indication: Renal transplant
     Dosage: UNK, BID
     Route: 048

REACTIONS (13)
  - Ureteric stenosis [Unknown]
  - Ascites [Unknown]
  - Polyp [Unknown]
  - Secretion discharge [Unknown]
  - Cyst [Unknown]
  - Illness [Unknown]
  - Cervicitis [Unknown]
  - Abdominal discomfort [Unknown]
  - Pollakiuria [Unknown]
  - Lymphocytosis [Unknown]
  - Vitamin D abnormal [Unknown]
  - Microalbuminuria [Unknown]
  - Drug level decreased [Unknown]
